FAERS Safety Report 4873723-8 (Version None)
Quarter: 2006Q1

REPORT INFORMATION
  Report Type: 
  Country: None (occurrence: None)
  Receive Date: 20060105
  Receipt Date: 20060105
  Transmission Date: 20060701
  Serious: No
  Sender: FDA-Public Use
  Company Number: None

PATIENT

DRUGS (1)
  1. HYOSCYAMINE ORAL DROPS [Suspect]
     Dosage: LIQUID

REACTIONS (7)
  - MALAISE [None]
  - MEDICATION ERROR [None]
  - NECK MASS [None]
  - OVERDOSE [None]
  - PHARMACEUTICAL PRODUCT COMPLAINT [None]
  - PYREXIA [None]
  - TACHYCARDIA [None]
